FAERS Safety Report 5120674-X (Version None)
Quarter: 2006Q4

REPORT INFORMATION
  Report Type: 
  Country: None (occurrence: None)
  Receive Date: 20061003
  Receipt Date: 20061003
  Transmission Date: 20070319
  Serious: Yes (Other)
  Sender: FDA-Public Use
  Company Number: None

PATIENT
  Age: 54 Year
  Sex: Female
  Weight: 55.7924 kg

DRUGS (1)
  1. MIACALCIN [Suspect]
     Indication: OSTEOPENIA
     Dosage: 1 NASAL PER DAY
     Route: 045
     Dates: start: 20010101

REACTIONS (3)
  - BONE DENSITY DECREASED [None]
  - DRUG INEFFECTIVE [None]
  - OSTEOPOROSIS [None]
